FAERS Safety Report 5607804-8 (Version None)
Quarter: 2008Q1

REPORT INFORMATION
  Report Type: 
  Country: None (occurrence: None)
  Receive Date: 20080130
  Receipt Date: 20080116
  Transmission Date: 20080703
  Serious: Yes (Hospitalization, Other)
  Sender: FDA-Public Use
  Company Number: CA-AMGEN-US253798

PATIENT
  Sex: Female
  Weight: 63.6 kg

DRUGS (2)
  1. ENBREL [Suspect]
     Indication: RHEUMATOID ARTHRITIS
     Route: 058
     Dates: start: 20070925, end: 20071030
  2. METHOTREXATE [Concomitant]
     Route: 058
     Dates: start: 20060727, end: 20071130

REACTIONS (1)
  - PNEUMOCYSTIS JIROVECI PNEUMONIA [None]
